FAERS Safety Report 22004347 (Version 2)
Quarter: 2023Q1

REPORT INFORMATION
  Report Type: Report from Study
  Country: IT (occurrence: IT)
  Receive Date: 20230217
  Receipt Date: 20230309
  Transmission Date: 20230418
  Serious: Yes (Hospitalization, Other)
  Sender: FDA-Public Use
  Company Number: None

PATIENT
  Age: 4 Year
  Sex: Female
  Weight: 16 kg

DRUGS (5)
  1. VINCRISTINE [Suspect]
     Active Substance: VINCRISTINE
     Indication: Acute lymphocytic leukaemia
     Dosage: 1 MG/DAY ON 12/27, 02, 01/09/23 , VINCRISTINA TEVA ITALIA
     Route: 065
     Dates: start: 20221227, end: 20230123
  2. ONCASPAR [Suspect]
     Active Substance: PEGASPARGASE
     Indication: Acute lymphocytic leukaemia
     Dosage: 1690 U/I
     Route: 065
     Dates: start: 20221227, end: 20221227
  3. THIOGUANINE ANHYDROUS [Suspect]
     Active Substance: THIOGUANINE ANHYDROUS
     Indication: Acute lymphocytic leukaemia
     Dosage: 40 MILLIGRAM DAILY; 40 MG (1 TABLET) /DAY FROM 30/01/23, SUSPENDED ON 11/02/23, DURATION : 12 DAYS
     Route: 065
     Dates: start: 20230130, end: 20230211
  4. CYCLOPHOSPHAMIDE [Suspect]
     Active Substance: CYCLOPHOSPHAMIDE
     Indication: Acute lymphocytic leukaemia
     Dosage: 667 MILLIGRAM DAILY;
     Route: 065
     Dates: start: 20230130, end: 20230130
  5. CYTARABINE [Suspect]
     Active Substance: CYTARABINE
     Indication: Acute lymphocytic leukaemia
     Dosage: 50, 50 MG/DAY FROM 01/02 TO 04/02/23, FROM 08/02 TO 10/02/23, DURATION : 9 DAYS
     Route: 065
     Dates: start: 20230201, end: 20230210

REACTIONS (4)
  - Pancytopenia [Recovering/Resolving]
  - Febrile neutropenia [Not Recovered/Not Resolved]
  - Stomatitis [Recovering/Resolving]
  - Anaemia [Not Recovered/Not Resolved]

NARRATIVE: CASE EVENT DATE: 20230109
